FAERS Safety Report 9140330 (Version 1)
Quarter: 2013Q1

REPORT INFORMATION
  Report Type: Spontaneous
  Country: US (occurrence: None)
  Receive Date: 20130227
  Receipt Date: 20130227
  Transmission Date: 20140127
  Serious: Yes (Death)
  Sender: FDA-Public Use
  Company Number: SYM-2013-00137

PATIENT
  Age: 54 Year
  Sex: Male

DRUGS (7)
  1. LORAZEPAM [Suspect]
     Indication: PRODUCT USED FOR UNKNOWN INDICATION
     Dosage: INGESTION
  2. DILTIAZEM (DILTIAZEM) (DILTIAZEM) [Suspect]
     Indication: PRODUCT USED FOR UNKNOWN INDICATION
  3. ACETAMINOPHEN [Suspect]
     Indication: PRODUCT USED FOR UNKNOWN INDICATION
  4. SKELETAL MUSCLE RELAXANT (ALL OTHER THERAPEUTIC PRODUCTS) (NULL) [Suspect]
     Indication: PRODUCT USED FOR UNKNOWN INDICATION
  5. HYDROCODONE [Suspect]
     Indication: PRODUCT USED FOR UNKNOWN INDICATION
  6. HYDROMORPHONE [Suspect]
     Indication: PRODUCT USED FOR UNKNOWN INDICATION
  7. MIDAZOLAM [Suspect]
     Indication: PRODUCT USED FOR UNKNOWN INDICATION

REACTIONS (2)
  - Poisoning [None]
  - Intentional drug misuse [None]
